FAERS Safety Report 16952950 (Version 1)
Quarter: 2019Q4

REPORT INFORMATION
  Report Type: Spontaneous
  Country: US (occurrence: US)
  Receive Date: 20191023
  Receipt Date: 20191023
  Transmission Date: 20200122
  Serious: Yes (Death, Other)
  Sender: FDA-Public Use
  Company Number: NVSC2019US013217

PATIENT
  Age: 26 Year
  Sex: Male

DRUGS (3)
  1. AMOXICILLIN. [Suspect]
     Active Substance: AMOXICILLIN
     Indication: PRODUCT USED FOR UNKNOWN INDICATION
     Dosage: UNK
     Route: 065
  2. ACETAMINOPHEN (PARACETAMOL) [Suspect]
     Active Substance: ACETAMINOPHEN
     Indication: PRODUCT USED FOR UNKNOWN INDICATION
     Dosage: UNK
     Route: 065
  3. ANTIINFLAMMATORY AGENTS, NON-STEROIDS [Concomitant]
     Active Substance: UNSPECIFIED INGREDIENT
     Indication: PRODUCT USED FOR UNKNOWN INDICATION
     Dosage: UNK
     Route: 065

REACTIONS (17)
  - Splenomegaly [Fatal]
  - Multiple organ dysfunction syndrome [Fatal]
  - Hepatic failure [Unknown]
  - Lymphadenopathy [Unknown]
  - Coagulopathy [Unknown]
  - Pyrexia [Fatal]
  - Rash erythematous [Unknown]
  - Skin erosion [Unknown]
  - Hypofibrinogenaemia [Fatal]
  - Brain oedema [Fatal]
  - Macule [Unknown]
  - Papule [Unknown]
  - Haemophagocytic lymphohistiocytosis [Fatal]
  - Stevens-Johnson syndrome [Unknown]
  - Blister [Unknown]
  - Acute kidney injury [Unknown]
  - Skin plaque [Unknown]
